FAERS Safety Report 10059930 (Version 2)
Quarter: 2014Q2

REPORT INFORMATION
  Report Type: Report from Study
  Country: JP (occurrence: JP)
  Receive Date: 20140404
  Receipt Date: 20140404
  Transmission Date: 20141212
  Serious: Yes (Death, Other)
  Sender: FDA-Public Use
  Company Number: JP-VIIV HEALTHCARE LIMITED-B0293676B

PATIENT
  Age: 23 Year
  Sex: Male
  Weight: 54 kg

DRUGS (20)
  1. ZIAGEN [Suspect]
     Indication: HIV INFECTION
     Dosage: 300MG TWICE PER DAY
     Route: 048
     Dates: start: 19990329, end: 20050715
  2. RETROVIR [Suspect]
     Indication: ACQUIRED IMMUNODEFICIENCY SYNDROME
     Route: 048
     Dates: start: 19930515, end: 19971111
  3. ZERIT [Suspect]
     Indication: ACQUIRED IMMUNODEFICIENCY SYNDROME
     Route: 048
     Dates: start: 19980114
  4. STOCRIN [Suspect]
     Indication: ACQUIRED IMMUNODEFICIENCY SYNDROME
     Dosage: 600MG PER DAY
     Route: 048
     Dates: start: 19990329, end: 20020303
  5. VIDEX [Suspect]
     Indication: ACQUIRED IMMUNODEFICIENCY SYNDROME
     Dates: start: 19951030, end: 20010420
  6. VIRACEPT [Suspect]
     Indication: ACQUIRED IMMUNODEFICIENCY SYNDROME
     Route: 048
     Dates: start: 19970804, end: 20020303
  7. SEROSTIM [Suspect]
     Indication: WEIGHT DECREASED
     Route: 058
     Dates: start: 20010423, end: 20050623
  8. KALETRA [Suspect]
     Indication: ACQUIRED IMMUNODEFICIENCY SYNDROME
     Dosage: 6CAP PER DAY
     Route: 048
     Dates: start: 20020304
  9. INVIRASE [Suspect]
     Indication: HIV INFECTION
     Route: 048
     Dates: start: 19970211, end: 19980311
  10. NORVIR [Suspect]
     Indication: HIV INFECTION
     Dates: start: 19971111, end: 19980311
  11. VIDEX EC [Suspect]
     Indication: HIV INFECTION
     Dosage: 250MG PER DAY
     Dates: start: 20070421, end: 20070715
  12. RECOMBINATE [Concomitant]
     Indication: FACTOR VIII DEFICIENCY
     Route: 042
     Dates: start: 20010401
  13. EPIVIR [Concomitant]
     Indication: HIV INFECTION
     Dosage: 300MG PER DAY
     Route: 048
     Dates: start: 19970509, end: 19981116
  14. HIVID [Concomitant]
     Indication: HIV INFECTION
     Dosage: 2.25MG PER DAY
     Route: 048
     Dates: start: 19970211, end: 19990329
  15. PROZEI [Concomitant]
     Indication: HIV INFECTION
     Route: 048
     Dates: start: 19990510, end: 19990817
  16. LOPERAMIDE [Concomitant]
  17. PEGASYS [Concomitant]
     Indication: HEPATITIS C
     Route: 058
     Dates: start: 20030317, end: 20030604
  18. REBETOL [Concomitant]
     Indication: HEPATITIS C
     Dosage: 600MG PER DAY
     Route: 048
     Dates: start: 20030317, end: 20030604
  19. REYATAZ [Concomitant]
     Indication: ACQUIRED IMMUNODEFICIENCY SYNDROME
     Route: 048
     Dates: start: 20041008
  20. VIREAD [Concomitant]
     Indication: ACQUIRED IMMUNODEFICIENCY SYNDROME
     Route: 048
     Dates: start: 20040528, end: 20041004

REACTIONS (4)
  - HIV wasting syndrome [Not Recovered/Not Resolved]
  - Weight decreased [Unknown]
  - Haemorrhage intracranial [Fatal]
  - Osteonecrosis [Recovered/Resolved with Sequelae]
